FAERS Safety Report 6121007-2 (Version None)
Quarter: 2009Q1

REPORT INFORMATION
  Report Type: 
  Country: None (occurrence: None)
  Receive Date: 20090317
  Receipt Date: 20090313
  Transmission Date: 20090719
  Serious: Yes (Death, Hospitalization, Other)
  Sender: FDA-Public Use
  Company Number: PHHY2009BR09472

PATIENT
  Sex: Female
  Weight: 61 kg

DRUGS (3)
  1. TEGRETOL [Suspect]
     Indication: CONVULSION
     Dosage: 2 TABLETS DAILY
     Route: 048
     Dates: start: 20070101, end: 20090307
  2. TEGRETOL [Suspect]
     Dosage: 3 TABLETS DAILY
  3. XELODA [Concomitant]
     Dosage: 3 TABLETS IN THE MORNING (2 HOURS AFTER SECOND MEAL AND 2 HOURS BEFORE THIRD MEAL

REACTIONS (4)
  - DYSPNOEA [None]
  - HORNER'S SYNDROME [None]
  - PLEURAL EFFUSION [None]
  - TREMOR [None]
